FAERS Safety Report 5043868-0 (Version None)
Quarter: 2006Q3

REPORT INFORMATION
  Report Type: 
  Country: None (occurrence: None)
  Receive Date: 20060706
  Receipt Date: 20060601
  Transmission Date: 20061208
  Serious: Yes (Other)
  Sender: FDA-Public Use
  Company Number: US-AVENTIS-200614880US

PATIENT
  Sex: Female
  Weight: 89.81 kg

DRUGS (5)
  1. KETEK [Suspect]
     Indication: UPPER RESPIRATORY TRACT INFECTION
     Route: 048
     Dates: start: 20050714
  2. KETEK [Suspect]
     Route: 048
     Dates: start: 20060105
  3. DOXYCYCLINE [Concomitant]
     Dosage: DOSE: UNK
     Dates: start: 20050619
  4. ADVIL [Concomitant]
     Dosage: DOSE: UNK
  5. ANTITUSSIVES AND EXPECTORANTS, COMBINATIONS [Concomitant]
     Dosage: DOSE: UNK

REACTIONS (25)
  - ABDOMINAL DISCOMFORT [None]
  - ABDOMINAL PAIN [None]
  - ALANINE AMINOTRANSFERASE INCREASED [None]
  - ASPARTATE AMINOTRANSFERASE INCREASED [None]
  - BAND NEUTROPHIL COUNT DECREASED [None]
  - BILIRUBIN CONJUGATED INCREASED [None]
  - BLOOD ALKALINE PHOSPHATASE INCREASED [None]
  - BLOOD BILIRUBIN INCREASED [None]
  - BLOOD CHOLESTEROL INCREASED [None]
  - CHROMATURIA [None]
  - DYSPNOEA PAROXYSMAL NOCTURNAL [None]
  - EOSINOPHIL COUNT INCREASED [None]
  - FATIGUE [None]
  - HEPATIC FAILURE [None]
  - HEPATITIS [None]
  - HYPERHIDROSIS [None]
  - LOW DENSITY LIPOPROTEIN INCREASED [None]
  - MEAN CELL HAEMOGLOBIN INCREASED [None]
  - MYALGIA [None]
  - NAUSEA [None]
  - PAIN [None]
  - PYREXIA [None]
  - SINUS CONGESTION [None]
  - VOMITING [None]
  - WHITE BLOOD CELL COUNT DECREASED [None]
